FAERS Safety Report 22912618 (Version 3)
Quarter: 2023Q4

REPORT INFORMATION
  Report Type: Spontaneous
  Country: CA (occurrence: CA)
  Receive Date: 20230906
  Receipt Date: 20231017
  Transmission Date: 20240109
  Serious: No
  Sender: FDA-Public Use
  Company Number: CA-PFIZER INC-202300281584

PATIENT
  Age: 76 Year
  Sex: Female

DRUGS (1)
  1. FRAGMIN [Suspect]
     Active Substance: DALTEPARIN SODIUM
     Dosage: 10,000 IU (100, 000 UNITS/0.4ML PFS)

REACTIONS (2)
  - Injection site bruising [Unknown]
  - Needle issue [Unknown]
